FAERS Safety Report 5665557-1 (Version None)
Quarter: 2008Q1

REPORT INFORMATION
  Report Type: 
  Country: None (occurrence: None)
  Receive Date: 20080314
  Receipt Date: 20071204
  Transmission Date: 20080703
  Serious: No
  Sender: FDA-Public Use
  Company Number: US-ABBOTT-07P-163-0428626-00

PATIENT
  Sex: Male

DRUGS (5)
  1. HUMIRA [Suspect]
     Indication: RHEUMATOID ARTHRITIS
     Route: 058
     Dates: start: 20070815
  2. HUMIRA [Suspect]
     Indication: PSORIATIC ARTHROPATHY
  3. HYZAAR [Concomitant]
     Indication: HYPERTENSION
     Route: 048
  4. OXAPRAZINE [Concomitant]
     Indication: DRUG USE FOR UNKNOWN INDICATION
     Route: 048
  5. LESFLUNOMIDE [Concomitant]
     Indication: RHEUMATOID ARTHRITIS

REACTIONS (4)
  - HYPOAESTHESIA [None]
  - NEURALGIA [None]
  - PARAESTHESIA [None]
  - TOOTHACHE [None]
